FAERS Safety Report 24736904 (Version 1)
Quarter: 2024Q4

REPORT INFORMATION
  Report Type: Spontaneous
  Country: US (occurrence: US)
  Receive Date: 20241216
  Receipt Date: 20241216
  Transmission Date: 20250114
  Serious: No
  Sender: ALVOGEN
  Company Number: US-ALVOGEN-2024094340

PATIENT
  Sex: Female

DRUGS (2)
  1. FENTANYL [Suspect]
     Active Substance: FENTANYL
     Indication: Back pain
     Dosage: 75MCG/HR; EVERY THREE DAYS?EXPIRATION DATE: UU-DEC-2026
     Route: 062
     Dates: start: 20240404
  2. OXYCODONE [Concomitant]
     Active Substance: OXYCODONE
     Indication: Pain
     Dosage: WHITE CIRCULAR PILL WITH 10 ON ONE SIDE; R ON TOP AND P ON THE BOTTOM AND SCORED IN MIDDLE.

REACTIONS (4)
  - Skin injury [Unknown]
  - Erythema [Unknown]
  - Drug effect less than expected [Unknown]
  - Wrong technique in device usage process [Unknown]

NARRATIVE: CASE EVENT DATE: 20240401
